FAERS Safety Report 15223121 (Version 1)
Quarter: 2018Q3

REPORT INFORMATION
  Report Type: Spontaneous
  Country: US (occurrence: US)
  Receive Date: 20180731
  Receipt Date: 20180731
  Transmission Date: 20181010
  Serious: No
  Sender: FDA-Public Use
  Company Number: US-AKRON, INC.-2053040

PATIENT
  Sex: Female

DRUGS (1)
  1. KETOTIFEN [Suspect]
     Active Substance: KETOTIFEN
     Route: 047

REACTIONS (5)
  - Eye pruritus [Unknown]
  - Eye discharge [Unknown]
  - Eye irritation [Unknown]
  - Hypersensitivity [Unknown]
  - Ocular hyperaemia [Unknown]
